FAERS Safety Report 24586805 (Version 1)
Quarter: 2024Q4

REPORT INFORMATION
  Report Type: Spontaneous
  Country: US (occurrence: US)
  Receive Date: 20241107
  Receipt Date: 20241107
  Transmission Date: 20250114
  Serious: No
  Sender: Kenvue
  Company Number: US-KENVUE-20241030673

PATIENT
  Sex: Female

DRUGS (2)
  1. WOMENS ROGAINE UNSCENTED [Suspect]
     Active Substance: MINOXIDIL
     Indication: Product used for unknown indication
     Dosage: ONCE A DAY (EACH DAY AT NIGHT TIME)
     Route: 061
     Dates: start: 202403
  2. Viviscal Hair Thickening Shampoo and Conditioner [Concomitant]
     Indication: Product used for unknown indication

REACTIONS (3)
  - Alopecia [Recovering/Resolving]
  - Hair texture abnormal [Unknown]
  - Contraindicated product administered [Unknown]

NARRATIVE: CASE EVENT DATE: 20240101
